FAERS Safety Report 12200274 (Version 1)
Quarter: 2016Q1

REPORT INFORMATION
  Report Type: Spontaneous
  Country: US (occurrence: US)
  Receive Date: 20160322
  Receipt Date: 20160322
  Transmission Date: 20160526
  Serious: No
  Sender: FDA-Public Use
  Company Number: US-HORIZON-PEN-0118-2016

PATIENT
  Age: 53 Year
  Sex: Male

DRUGS (1)
  1. PENNSAID [Suspect]
     Active Substance: DICLOFENAC SODIUM
     Indication: INFLAMMATION
     Dosage: USED ONCE ONLY

REACTIONS (3)
  - Product physical consistency issue [Unknown]
  - Application site paraesthesia [Unknown]
  - Off label use [Unknown]

NARRATIVE: CASE EVENT DATE: 20160318
